FAERS Safety Report 8491282-8 (Version None)
Quarter: 2012Q3

REPORT INFORMATION
  Report Type: 
  Country: None (occurrence: None)
  Receive Date: 20120706
  Receipt Date: 20120702
  Transmission Date: 20120928
  Serious: Yes (Other)
  Sender: FDA-Public Use
  Company Number: PHHY2012BR048294

PATIENT
  Age: 7 Year
  Sex: Male

DRUGS (1)
  1. RITALIN [Suspect]
     Indication: PSYCHOMOTOR HYPERACTIVITY
     Dosage: 0.5 DF, UNK

REACTIONS (4)
  - UPPER LIMB FRACTURE [None]
  - FALL [None]
  - HYPOAESTHESIA [None]
  - PAIN IN EXTREMITY [None]
